FAERS Safety Report 6368440-1 (Version None)
Quarter: 2009Q3

REPORT INFORMATION
  Report Type: 
  Country: None (occurrence: None)
  Receive Date: 20090917
  Receipt Date: 20090917
  Transmission Date: 20100115
  Serious: Yes (Hospitalization)
  Sender: FDA-Public Use
  Company Number: None

PATIENT
  Age: 43 Year
  Sex: Female
  Weight: 81.6475 kg

DRUGS (2)
  1. MACRODANTIN [Suspect]
     Indication: URINARY TRACT INFECTION
     Dosage: 14 CAPSULES 2 TIMES PER DAY PO
     Route: 048
     Dates: start: 20090801, end: 20090802
  2. MACRODANTIN [Suspect]
     Indication: URINARY TRACT INFECTION
     Dosage: 14 CAPSULES 2 TIMES PER DAY PO
     Route: 048
     Dates: start: 20090912, end: 20090913

REACTIONS (12)
  - ARTHRALGIA [None]
  - CHILLS [None]
  - DECREASED ACTIVITY [None]
  - DISEASE RECURRENCE [None]
  - FEELING COLD [None]
  - MUSCULOSKELETAL CHEST PAIN [None]
  - MYALGIA [None]
  - NECK PAIN [None]
  - PELVIC PAIN [None]
  - PYREXIA [None]
  - URINARY TRACT INFECTION [None]
  - URTICARIA [None]
